FAERS Safety Report 9901746 (Version 4)
Quarter: 2014Q3

REPORT INFORMATION
  Report Type: Spontaneous
  Country: US (occurrence: US)
  Receive Date: 20140217
  Receipt Date: 20140919
  Transmission Date: 20150326
  Serious: No
  Sender: FDA-Public Use
  Company Number: US-009507513-1402USA002992

PATIENT
  Age: 74 Year
  Sex: Male
  Weight: 84.36 kg

DRUGS (17)
  1. MULTIVITAMINS [Concomitant]
     Active Substance: VITAMINS
     Dosage: 1 DF, QD
     Route: 048
  2. RED YEAST [Suspect]
     Active Substance: YEAST
     Dosage: 2 DF, QD
     Route: 048
  3. GLUCOSAMINE [Concomitant]
     Active Substance: GLUCOSAMINE
     Indication: ARTHROPATHY
     Dosage: PO DAILY
     Route: 048
  4. ASPIRIN. [Concomitant]
     Active Substance: ASPIRIN
     Dosage: 1 DF, QD
     Route: 048
  5. OMEPRAZOLE. [Concomitant]
     Active Substance: OMEPRAZOLE
     Dosage: 1 DF, QD
     Route: 048
  6. TAMSULOSIN HYDROCHLORIDE. [Concomitant]
     Active Substance: TAMSULOSIN HYDROCHLORIDE
     Dosage: 1 PO DAILY AS NEEDED
     Route: 048
  7. COLCRYS [Concomitant]
     Active Substance: COLCHICINE
     Indication: GOUT
     Dosage: 2 TABLTS BY MOUTH FOLLOWED BY 1 TABLET IN 1 HOUR IF NEEDED FOR GOUT FLARE.  NO MORE THAN 3 TABLET
     Route: 048
  8. MAGNESIUM OXIDE. [Concomitant]
     Active Substance: MAGNESIUM OXIDE
     Dosage: 250 MG, QD
     Route: 048
  9. VITAMIN B COMPLEX 50 [Concomitant]
     Dosage: PO DAILY
     Route: 048
  10. OMEGA-3 MARINE TRIGLYCERIDES [Concomitant]
     Active Substance: FISH OIL
     Dosage: 2 DF, BID
  11. CALCIUM CREAMIES CHEW [Concomitant]
     Dosage: 1200 BY MOUTH EVERY DAY
     Route: 048
  12. SERTRALINE HYDROCHLORIDE. [Concomitant]
     Active Substance: SERTRALINE HYDROCHLORIDE
     Dosage: 1 DF, QD
     Route: 048
  13. FLAXSEED [Concomitant]
     Active Substance: FLAX SEED
     Dosage: DAILY
  14. LECITHIN [Concomitant]
     Active Substance: LECITHIN
     Dosage: 1 TSP EVERY DAY
  15. UBIQUINOL [Concomitant]
     Dosage: 100 G, QD
  16. ZETIA [Suspect]
     Active Substance: EZETIMIBE
     Indication: BLOOD CHOLESTEROL
     Dosage: 10 MG, QD
     Route: 048
     Dates: start: 201206, end: 201309
  17. PROSCAR [Concomitant]
     Active Substance: FINASTERIDE
     Indication: BENIGN PROSTATIC HYPERPLASIA
     Dosage: 1 DF, QD
     Route: 048

REACTIONS (5)
  - Anaemia [Unknown]
  - Anxiety [Unknown]
  - Depression [Recovering/Resolving]
  - Petit mal epilepsy [Recovering/Resolving]
  - Transient global amnesia [Recovering/Resolving]

NARRATIVE: CASE EVENT DATE: 201207
